FAERS Safety Report 17699224 (Version 2)
Quarter: 2020Q3

REPORT INFORMATION
  Report Type: Report from Study
  Country: GB (occurrence: GB)
  Receive Date: 20200423
  Receipt Date: 20200911
  Transmission Date: 20201102
  Serious: Yes (Hospitalization, Other)
  Sender: FDA-Public Use
  Company Number: GB-MYLANLABS-2019M1096254

PATIENT
  Age: 34 Year
  Sex: Female

DRUGS (52)
  1. CLEXANE [Concomitant]
     Active Substance: ENOXAPARIN SODIUM
     Dosage: 110 MILLIGRAM, QD
     Route: 058
     Dates: start: 20160825, end: 20160914
  2. LEVETIRACETAM. [Concomitant]
     Active Substance: LEVETIRACETAM
     Dosage: 1 GRAM
     Route: 042
     Dates: start: 20170616, end: 20170616
  3. DEXAMETHASONE. [Concomitant]
     Active Substance: DEXAMETHASONE
     Dosage: 2 MILLIGRAM, QD
     Route: 048
     Dates: start: 20180111
  4. METOCLOPRAMIDE. [Concomitant]
     Active Substance: METOCLOPRAMIDE
     Dosage: 10 MILLIGRAM, AS NEEDED
     Route: 048
     Dates: start: 20160610, end: 20161111
  5. ENOXAPARIN [Concomitant]
     Active Substance: ENOXAPARIN
     Dosage: 40 MILLIGRAM, QD
     Route: 058
     Dates: start: 20170616, end: 20170623
  6. CHLORPHENAMINE [Concomitant]
     Active Substance: CHLORPHENIRAMINE MALEATE
     Dosage: 10 MILLIGRAM
     Route: 042
     Dates: start: 20160928, end: 20170724
  7. LANSOPRAZOLE. [Concomitant]
     Active Substance: LANSOPRAZOLE
     Dosage: 30 MILLIGRAM, QD
     Route: 048
     Dates: start: 20160809
  8. RANITIDINE. [Concomitant]
     Active Substance: RANITIDINE
     Dosage: 50 MILLIGRAM,AS NEEDED
     Route: 048
     Dates: start: 20170617, end: 20170618
  9. RAMIPRIL. [Concomitant]
     Active Substance: RAMIPRIL
     Dosage: 2.3 MILLIGRAM
     Route: 048
     Dates: start: 20160722, end: 20161011
  10. CODINE LINCTUS [Concomitant]
     Dosage: 10 MILLILITER, AS NEEDED
     Route: 048
     Dates: start: 20170619, end: 20170619
  11. ENOXAPARIN [Concomitant]
     Active Substance: ENOXAPARIN
     Dosage: UNK UNK, QD
     Route: 058
     Dates: start: 20180214, end: 20180218
  12. LEVETIRACETAM. [Concomitant]
     Active Substance: LEVETIRACETAM
     Dosage: 500 MILLIGRAM, 0.5 DAY
     Route: 048
     Dates: start: 20170617
  13. SALINE                             /00075401/ [Concomitant]
     Active Substance: SODIUM CHLORIDE
     Dosage: 5 MILLILITER, 0.25 WEEK
     Route: 055
     Dates: start: 20170616, end: 20170623
  14. TRASTUZUMAB. [Suspect]
     Active Substance: TRASTUZUMAB
     Dosage: 451.5 MILLIGRAM, Q3W
     Route: 042
     Dates: start: 20170428, end: 20170519
  15. TRASTUZUMAB. [Suspect]
     Active Substance: TRASTUZUMAB
     Dosage: 280 MILLIGRAM, Q3W
     Route: 042
     Dates: start: 20180131, end: 20180131
  16. DOCETAXEL. [Suspect]
     Active Substance: DOCETAXEL
     Dosage: 108 MILLIGRAM, Q3W
     Route: 042
     Dates: start: 20161111, end: 20161111
  17. PERTUZUMAB. [Suspect]
     Active Substance: PERTUZUMAB
     Indication: HER2 POSITIVE BREAST CANCER
     Dosage: 840 MILLIGRAM, QD (LOADING DOSE)
     Route: 042
     Dates: start: 20160609
  18. TAMOXIFEN [Suspect]
     Active Substance: TAMOXIFEN
     Indication: BREAST CANCER METASTATIC
     Dosage: 20 MILLIGRAM, QD
     Route: 048
     Dates: start: 20170623, end: 20171228
  19. SALBUTAMOL [Concomitant]
     Active Substance: ALBUTEROL
     Dosage: 2.5 MILLIGRAM, 0.33 DAY
     Route: 055
     Dates: start: 20160822, end: 20160908
  20. COTRIMOXAZOLE [Concomitant]
     Active Substance: SULFAMETHOXAZOLE\TRIMETHOPRIM
     Dosage: 483 MILLIGRAM
     Route: 048
     Dates: start: 20180131, end: 20180131
  21. DEXAMETHASONE. [Concomitant]
     Active Substance: DEXAMETHASONE
     Dosage: UNK UNK, QD
     Route: 048
     Dates: start: 20160805, end: 201609
  22. TRASTUZUMAB. [Suspect]
     Active Substance: TRASTUZUMAB
     Dosage: 451.5 MILLIGRAM, Q3W
     Route: 042
     Dates: start: 20161021, end: 20161111
  23. DOCETAXEL. [Suspect]
     Active Substance: DOCETAXEL
     Indication: HER2 POSITIVE BREAST CANCER
     Dosage: 130 MILLIGRAM, Q3W
     Route: 042
     Dates: start: 20160701
  24. CHLORPHENAMINE [Concomitant]
     Active Substance: CHLORPHENIRAMINE MALEATE
     Dosage: 10 MILLIGRAM
     Route: 042
     Dates: start: 20160907, end: 20160907
  25. DEXAMETHASONE. [Concomitant]
     Active Substance: DEXAMETHASONE
     Dosage: 8 MILLIGRAM, QD
     Route: 042
     Dates: start: 20160803, end: 20160805
  26. LANSOPRAZOLE. [Concomitant]
     Active Substance: LANSOPRAZOLE
     Dosage: 30 MILLIGRAM, QD
     Route: 048
     Dates: start: 20160722, end: 20160724
  27. DIFLAM [Concomitant]
     Dosage: 0.33 DAY
     Route: 048
     Dates: start: 20160722, end: 20160723
  28. SEPTRIN [Concomitant]
     Active Substance: SULFAMETHOXAZOLE\TRIMETHOPRIM
     Dosage: 2112 MILLIGRAM, 0.33 DAY
     Route: 042
     Dates: start: 20160811, end: 20160816
  29. TRASTUZUMAB. [Suspect]
     Active Substance: TRASTUZUMAB
     Dosage: 472.5 MILLIGRAM, Q3W
     Route: 042
     Dates: start: 20170612, end: 20171228
  30. TRASTUZUMAB. [Suspect]
     Active Substance: TRASTUZUMAB
     Dosage: 430.5 MILLIGRAM, Q3W
     Route: 042
     Dates: start: 20170224, end: 20170407
  31. DOCETAXEL. [Suspect]
     Active Substance: DOCETAXEL
     Indication: BREAST CANCER METASTATIC
     Dosage: 110 MILLIGRAM, Q3W
     Route: 042
     Dates: start: 20160907, end: 20161021
  32. ENOXAPARIN [Concomitant]
     Active Substance: ENOXAPARIN
     Dosage: 1200 MILLIGRAM, QD
     Route: 058
     Dates: start: 20180212, end: 20180212
  33. SALBUTAMOL [Concomitant]
     Active Substance: ALBUTEROL
     Dosage: 2.5 MILLIGRAM, PRN, AS NEEDED
     Route: 055
     Dates: start: 20170616, end: 20170618
  34. HYDROCORTISONE. [Concomitant]
     Active Substance: HYDROCORTISONE
     Dosage: 100 MILLIGRAM
     Route: 042
     Dates: start: 20160907, end: 20160907
  35. ORAMORPH [Concomitant]
     Active Substance: MORPHINE SULFATE
     Dosage: 2.5 MILLIGRAM, PRN
     Route: 048
     Dates: start: 20160828
  36. DEXAMETHASONE. [Concomitant]
     Active Substance: DEXAMETHASONE
     Dosage: 4 MILLIGRAM. 0.5 DAY
     Route: 048
     Dates: start: 20160722, end: 20160723
  37. TRASTUZUMAB. [Suspect]
     Active Substance: TRASTUZUMAB
     Dosage: 441 MILLIGRAM, Q3W
     Route: 042
     Dates: start: 20160907, end: 20160926
  38. TRASTUZUMAB. [Suspect]
     Active Substance: TRASTUZUMAB
     Dosage: 441 MILLIGRAM, Q3W
     Route: 042
     Dates: start: 20161202, end: 20170203
  39. PERTUZUMAB. [Suspect]
     Active Substance: PERTUZUMAB
     Indication: BREAST CANCER METASTATIC
     Dosage: 420 MILLIGRAM, Q3W
     Route: 042
     Dates: start: 20160701
  40. AMOXICILLIN. [Concomitant]
     Active Substance: AMOXICILLIN
     Dosage: UNK
     Route: 048
     Dates: start: 201712, end: 201712
  41. ENOXAPARIN [Concomitant]
     Active Substance: ENOXAPARIN
     Dosage: 40 MILLIGRAM, QD
     Route: 058
     Dates: start: 20160817, end: 20160914
  42. MEROPENEM. [Concomitant]
     Active Substance: MEROPENEM
     Dosage: 1 GRAM, 0.33 DAY
     Route: 042
     Dates: start: 20160809, end: 20160817
  43. DOCUSATE [Concomitant]
     Active Substance: DOCUSATE
     Dosage: 20 MILLIGRAM, QD
     Route: 048
     Dates: start: 20160722, end: 20160724
  44. LEVOMEPROMAZINE [Concomitant]
     Active Substance: LEVOMEPROMAZINE
     Dosage: 6.25 MILLIGRAM
     Route: 058
     Dates: start: 20170617, end: 20170617
  45. FILGRASTIM [Concomitant]
     Active Substance: FILGRASTIM
     Dosage: 300 MICROGRAM
     Route: 058
     Dates: start: 20160731, end: 20161112
  46. TRASTUZUMAB. [Suspect]
     Active Substance: TRASTUZUMAB
     Indication: HER2 POSITIVE BREAST CANCER
     Dosage: 567 MILLIGRAM, QD (LOADING DOSE)
     Route: 042
     Dates: start: 20160609, end: 20160609
  47. TRASTUZUMAB. [Suspect]
     Active Substance: TRASTUZUMAB
     Indication: BREAST CANCER METASTATIC
     Dosage: 420 MILLIGRAM, Q3W
     Route: 042
     Dates: start: 20160701, end: 20160727
  48. TAMOXIFEN [Suspect]
     Active Substance: TAMOXIFEN
     Indication: HER2 POSITIVE BREAST CANCER
     Dosage: 20 MILLIGRAM, QD
     Route: 048
     Dates: start: 20180213, end: 20180605
  49. ADCAL D3 [Concomitant]
     Active Substance: CALCIUM CARBONATE\CHOLECALCIFEROL
     Dosage: 0.5 DAY
     Route: 048
     Dates: start: 20170621
  50. CLEXANE [Concomitant]
     Active Substance: ENOXAPARIN SODIUM
     Dosage: 40 MILLIGRAM, QD
     Route: 058
     Dates: start: 20160723, end: 20160723
  51. ZOPLICONE [Concomitant]
     Active Substance: ZOPICLONE
     Dosage: 3.75 MILLIGRAM, PRN, AS NEEDED
     Route: 048
     Dates: start: 20170618, end: 20170619
  52. SENNA [Concomitant]
     Active Substance: SENNA LEAF\SENNOSIDES\SENNOSIDES A AND B
     Dosage: 15 MILLIGRAM, QD
     Route: 048
     Dates: start: 20160722, end: 20161011

REACTIONS (7)
  - Diarrhoea [Recovered/Resolved]
  - Pneumonia [Recovered/Resolved]
  - Vomiting [Not Recovered/Not Resolved]
  - Excessive eye blinking [Recovered/Resolved]
  - Nausea [Recovered/Resolved]
  - Pain in jaw [Recovered/Resolved]
  - Lower respiratory tract infection [Recovered/Resolved]

NARRATIVE: CASE EVENT DATE: 20161009
